FAERS Safety Report 7331030-8 (Version None)
Quarter: 2011Q1

REPORT INFORMATION
  Report Type: 
  Country: None (occurrence: None)
  Receive Date: 20110218
  Receipt Date: 20110209
  Transmission Date: 20110831
  Serious: Yes (Hospitalization)
  Sender: FDA-Public Use
  Company Number: 2011030895

PATIENT
  Age: 67 Year
  Sex: Male

DRUGS (6)
  1. DALTEPARIN SODIUM [Suspect]
     Indication: LUNG ADENOCARCINOMA STAGE IV
     Dates: start: 20101020
  2. SERETIDE (FLUTICASONE PROPIONATE, SALMETEROL XINAFOATE) [Suspect]
     Dosage: ^2 X 250 MCG PUFFS^ TOTAL DAILY DOSE
  3. CARBOPLATIN [Concomitant]
  4. PEMETREXED [Concomitant]
  5. FOLIC ACID [Concomitant]
  6. AUGMENTIN (AMOXICILLIN TRIHYDRATE, CALVULANATE POTASSIUM) [Concomitant]

REACTIONS (1)
  - SUPRAVENTRICULAR TACHYCARDIA [None]
